FAERS Safety Report 7465404-1 (Version None)
Quarter: 2011Q2

REPORT INFORMATION
  Report Type: 
  Country: None (occurrence: None)
  Receive Date: 20110509
  Receipt Date: 20100722
  Transmission Date: 20111010
  Serious: No
  Sender: FDA-Public Use
  Company Number: US-BAUSCH-2010BL004008

PATIENT
  Age: 63 Year
  Sex: Female

DRUGS (3)
  1. LOTEMAX [Suspect]
     Indication: EYE INFLAMMATION
     Route: 047
     Dates: start: 20100608, end: 20100618
  2. SYNTHROID [Concomitant]
     Indication: HYPOTHYROIDISM
  3. ELAVIL [Concomitant]
     Indication: FIBROMYALGIA

REACTIONS (2)
  - PAIN IN EXTREMITY [None]
  - JOINT SWELLING [None]
